FAERS Safety Report 21370064 (Version 2)
Quarter: 2022Q3

REPORT INFORMATION
  Report Type: Spontaneous
  Country: GB (occurrence: GB)
  Receive Date: 20220923
  Receipt Date: 20220929
  Transmission Date: 20221026
  Serious: Yes (Other)
  Sender: FDA-Public Use
  Company Number: GB-BAXTER-2022BAX016081

PATIENT
  Age: 82 Year

DRUGS (6)
  1. DEXAMETHASONE SODIUM PHOSPHATE [Suspect]
     Active Substance: DEXAMETHASONE SODIUM PHOSPHATE
     Indication: Premedication
     Dosage: 8 MG
     Route: 042
     Dates: start: 20220715, end: 20220715
  2. TAXOL [Suspect]
     Active Substance: PACLITAXEL
     Indication: Gastric cancer
     Dosage: 60 MG
     Route: 042
     Dates: start: 20220715, end: 20220715
  3. CHLORPHENIRAMINE MALEATE [Suspect]
     Active Substance: CHLORPHENIRAMINE MALEATE
     Indication: Premedication
     Dosage: 10 MG
     Route: 042
     Dates: start: 20220715, end: 20220715
  4. SODIUM CHLORIDE [Suspect]
     Active Substance: SODIUM CHLORIDE
     Indication: Medication dilution
     Dosage: UNK
     Route: 042
     Dates: start: 20220715, end: 20220715
  5. SODIUM CHLORIDE [Suspect]
     Active Substance: SODIUM CHLORIDE
     Indication: Product used for unknown indication
     Dosage: UNK
     Route: 042
     Dates: start: 20220715, end: 20220715
  6. SODIUM CHLORIDE [Suspect]
     Active Substance: SODIUM CHLORIDE
     Dosage: UNK
     Route: 042
     Dates: start: 20220715, end: 20220715

REACTIONS (5)
  - Dyspnoea [Unknown]
  - Non-cardiac chest pain [Unknown]
  - Back pain [Unknown]
  - Erythema [Unknown]
  - Infusion related reaction [Unknown]

NARRATIVE: CASE EVENT DATE: 20220701
